FAERS Safety Report 4274636-5 (Version None)
Quarter: 2004Q1

REPORT INFORMATION
  Report Type: 
  Country: None (occurrence: None)
  Receive Date: 20040120
  Receipt Date: 20020222
  Transmission Date: 20041129
  Serious: Yes (Hospitalization)
  Sender: FDA-Public Use
  Company Number: US-BRISTOL-MYERS SQUIBB COMPANY-11738986

PATIENT
  Age: 78 Year
  Sex: Male
  Weight: 80 kg

DRUGS (19)
  1. GATIFLOXACIN [Suspect]
     Dosage: MOST RECENT DOSE PRIOR TO EVENT WAS ON 19-FEB-2002.
     Route: 048
     Dates: start: 20010208
  2. ATORVASTATIN [Suspect]
     Dosage: MOST RECENT DOSE PRIOR TO EVENT WAS ON 19-FEB-2002.
     Route: 048
     Dates: start: 20010124
  3. CYANOCOBALAMINE [Concomitant]
     Route: 030
     Dates: start: 20010413
  4. VITAMIN E [Concomitant]
     Route: 048
     Dates: start: 20011128
  5. RISPERIDONE [Concomitant]
     Route: 048
     Dates: start: 20011115
  6. RANITIDINE [Concomitant]
     Route: 048
     Dates: start: 20010621
  7. ISOSORBIDE DINITRATE [Concomitant]
     Route: 048
     Dates: start: 20010520
  8. DONEPEZIL HCL [Concomitant]
     Route: 048
     Dates: start: 20020220
  9. DOCUSATE [Concomitant]
     Route: 048
     Dates: start: 20010808
  10. DIGOXIN [Concomitant]
     Route: 048
     Dates: start: 20000520
  11. GLYBURIDE [Concomitant]
     Route: 048
     Dates: start: 19960125
  12. METFORMIN HCL [Concomitant]
     Route: 048
     Dates: start: 20001222
  13. ASPIRIN [Concomitant]
     Route: 048
     Dates: start: 19970530
  14. ATENOLOL [Concomitant]
     Route: 048
     Dates: start: 20010507
  15. AMLODIPINE BESYLATE [Concomitant]
     Route: 048
     Dates: start: 20010706
  16. CLOPIDOGREL BISULFATE [Concomitant]
     Route: 048
     Dates: start: 20010826
  17. NPH INSULIN [Concomitant]
     Dosage: STRENGTH:  100 UNITS/ML. DOSE DECREASED 12-FEB-02 FROM 10 UNITS TO 7 UNITS AT HOUR OF SLEEP.
     Route: 058
     Dates: start: 20011210
  18. MIRTAZAPINE [Concomitant]
     Route: 048
     Dates: start: 20011121
  19. QUININE SULFATE [Concomitant]
     Route: 048
     Dates: start: 19960325

REACTIONS (6)
  - ASTHENIA [None]
  - DIARRHOEA [None]
  - DYSARTHRIA [None]
  - HEART RATE INCREASED [None]
  - HYPERHIDROSIS [None]
  - HYPOGLYCAEMIA [None]
